FAERS Safety Report 10018394 (Version 4)
Quarter: 2014Q4

REPORT INFORMATION
  Report Type: Spontaneous
  Country: US (occurrence: US)
  Receive Date: 20140318
  Receipt Date: 20141112
  Transmission Date: 20150528
  Serious: No
  Sender: FDA-Public Use
  Company Number: US-009507513-1202USA00422

PATIENT
  Sex: Male
  Weight: 88.89 kg

DRUGS (4)
  1. FINASTERIDE. [Suspect]
     Active Substance: FINASTERIDE
     Indication: ALOPECIA
     Dosage: 1 MG, QD
     Route: 048
     Dates: start: 200808, end: 201001
  2. FINASTERIDE. [Suspect]
     Active Substance: FINASTERIDE
     Indication: ANDROGENETIC ALOPECIA
     Dosage: 5 MG, UNK
     Route: 048
     Dates: start: 20090925
  3. PROPECIA [Suspect]
     Active Substance: FINASTERIDE
     Indication: ANDROGENETIC ALOPECIA
     Dosage: 1 MG, QD
     Route: 048
     Dates: start: 200606, end: 200808
  4. PROPECIA [Suspect]
     Active Substance: FINASTERIDE
     Indication: ALOPECIA
     Dosage: 1 G, UNK
     Route: 048
     Dates: start: 20060609

REACTIONS (22)
  - Overdose [Unknown]
  - Joint injury [Unknown]
  - Penile wart [Unknown]
  - Sexual dysfunction [Not Recovered/Not Resolved]
  - Hypogonadism [Unknown]
  - Arthralgia [Unknown]
  - Blood testosterone decreased [Unknown]
  - Constipation [Unknown]
  - Obsessive-compulsive personality disorder [Unknown]
  - Erectile dysfunction [Unknown]
  - Depression [Not Recovered/Not Resolved]
  - Anxiety [Not Recovered/Not Resolved]
  - Ligament sprain [Unknown]
  - Drug administration error [Unknown]
  - Cognitive disorder [Not Recovered/Not Resolved]
  - Hypothyroidism [Unknown]
  - Viral infection [Unknown]
  - Adjustment disorder with mixed anxiety and depressed mood [Unknown]
  - Poor quality sleep [Recovering/Resolving]
  - Pain in extremity [Unknown]
  - Pain in extremity [Unknown]
  - Libido decreased [Not Recovered/Not Resolved]

NARRATIVE: CASE EVENT DATE: 2006
